FAERS Safety Report 5895561-X (Version None)
Quarter: 2008Q3

REPORT INFORMATION
  Report Type: 
  Country: None (occurrence: None)
  Receive Date: 20080924
  Receipt Date: 20080515
  Transmission Date: 20090109
  Serious: Yes (Other)
  Sender: FDA-Public Use
  Company Number: US-ASTRAZENECA-2006UW07927

PATIENT
  Age: 48 Year
  Sex: Male
  Weight: 80.7 kg

DRUGS (7)
  1. SEROQUEL [Suspect]
     Indication: BIPOLAR DISORDER
     Dosage: 50 MG -600 MG
     Route: 048
     Dates: start: 19990423, end: 20031014
  2. SEROQUEL [Suspect]
     Indication: SCHIZOPHRENIA
     Dosage: 50 MG -600 MG
     Route: 048
     Dates: start: 19990423, end: 20031014
  3. SEROQUEL [Suspect]
     Indication: DEPRESSION
     Dosage: 50 MG -600 MG
     Route: 048
     Dates: start: 19990423, end: 20031014
  4. LEXAPRO [Concomitant]
     Route: 048
     Dates: start: 20061001
  5. ABILIFY [Concomitant]
     Route: 048
     Dates: start: 20021201
  6. RISPERDAL [Concomitant]
     Dates: start: 19980306, end: 19980813
  7. ZYPREXA [Concomitant]
     Dates: start: 20000111, end: 20010322

REACTIONS (2)
  - DIABETES MELLITUS [None]
  - DIABETIC COMA [None]
